FAERS Safety Report 23553884 (Version 4)
Quarter: 2024Q3

REPORT INFORMATION
  Report Type: Spontaneous
  Country: IN (occurrence: IN)
  Receive Date: 20240222
  Receipt Date: 20240801
  Transmission Date: 20241017
  Serious: Yes (Other)
  Sender: PFIZER
  Company Number: IN-PFIZER INC-PV202300132029

PATIENT
  Age: 74 Year
  Sex: Female

DRUGS (8)
  1. PALBOCICLIB [Suspect]
     Active Substance: PALBOCICLIB
     Dosage: 100 MG OD (WITH FOOD, FOR 3 CYCLES 3 WEEKS ON AND ONE WEEK OFF)
     Route: 048
     Dates: start: 20220715
  2. DENOSUMAB [Concomitant]
     Active Substance: DENOSUMAB
     Dosage: 120 MG, ONCE IN 3 MONTHS
     Route: 058
  3. LETROZOLE [Concomitant]
     Active Substance: LETROZOLE
     Dosage: UNK
     Route: 048
  4. CALCIUM CARBONATE\CHOLECALCIFEROL [Concomitant]
     Active Substance: CALCIUM CARBONATE\CHOLECALCIFEROL
     Dosage: UNK
     Route: 048
  5. ONDANSETRON HYDROCHLORIDE [Concomitant]
     Active Substance: ONDANSETRON HYDROCHLORIDE
     Dosage: 8 MG (BEFORE MEALS SOS)
     Route: 048
  6. ULTRACET [Concomitant]
     Active Substance: ACETAMINOPHEN\TRAMADOL HYDROCHLORIDE
     Dosage: IF REQUIRED
     Route: 048
  7. CAMPHOR\GLYCERIN\MENTHOL\ZINC OXIDE [Concomitant]
     Active Substance: CAMPHOR\GLYCERIN\MENTHOL\ZINC OXIDE
     Dosage: BEFORE BREAKFAST (IF REQUIRED)
     Route: 048
  8. LETROZOLE [Concomitant]
     Active Substance: LETROZOLE
     Dosage: UNK
     Dates: start: 20220715

REACTIONS (3)
  - Second primary malignancy [Unknown]
  - Ovarian cancer [Unknown]
  - Tumour marker increased [Unknown]
